FAERS Safety Report 8884597 (Version 1)
Quarter: 2012Q4

REPORT INFORMATION
  Report Type: 
  Country: GB (occurrence: GB)
  Receive Date: 20121104
  Receipt Date: 20121104
  Transmission Date: 20130627
  Serious: Yes (Other)
  Sender: FDA-Public Use
  Company Number: GB-BAYER-2012-113823

PATIENT
  Sex: Female

DRUGS (3)
  1. CANESTEN 500MG VAGINAL PESSARY [Suspect]
  2. FLUCONAZOLE [Suspect]
     Dosage: UNK
     Dates: start: 201210
  3. UNSPECIFIED INGREDIENT [Concomitant]

REACTIONS (1)
  - Candidiasis [Not Recovered/Not Resolved]
